FAERS Safety Report 13028627 (Version 2)
Quarter: 2016Q4

REPORT INFORMATION
  Report Type: Spontaneous
  Country: IT (occurrence: IT)
  Receive Date: 20161214
  Receipt Date: 20161230
  Transmission Date: 20170207
  Serious: Yes (Other)
  Sender: FDA-Public Use
  Company Number: IT-PFIZER INC-2016573931

PATIENT
  Age: 73 Year
  Sex: Male
  Weight: 70 kg

DRUGS (3)
  1. IMBRUVICA [Suspect]
     Active Substance: IBRUTINIB
     Indication: CHRONIC LYMPHOCYTIC LEUKAEMIA
     Dosage: 140 MG, 3X/DAY
     Route: 048
     Dates: start: 20160301
  2. ZITROMAX [Suspect]
     Active Substance: AZITHROMYCIN
     Indication: ANTIBIOTIC PROPHYLAXIS
     Dosage: 500 MG FOR 5 DAYS MONTHLY
     Route: 048
     Dates: start: 20130101
  3. BACTRIM [Concomitant]
     Active Substance: SULFAMETHOXAZOLE\TRIMETHOPRIM
     Indication: ANTIFUNGAL PROPHYLAXIS
     Dosage: 1 TABLET EVERY 12 HOURS ONLY ON SATURDAY AND SUNDAY
     Route: 048
     Dates: start: 20160301

REACTIONS (1)
  - Prostate cancer [Unknown]

NARRATIVE: CASE EVENT DATE: 20161122
